FAERS Safety Report 8017045-5 (Version None)
Quarter: 2012Q1

REPORT INFORMATION
  Report Type: 
  Country: None (occurrence: None)
  Receive Date: 20120102
  Receipt Date: 20111228
  Transmission Date: 20120608
  Serious: Yes (Death, Other)
  Sender: FDA-Public Use
  Company Number: PHEH2009US02468

PATIENT
  Sex: Female

DRUGS (32)
  1. ZOMETA [Suspect]
     Indication: MULTIPLE MYELOMA
     Dosage: 4 MG, MONTHLY
     Dates: start: 20050720
  2. PROTONIX [Concomitant]
     Dosage: 40 MG, UNK
  3. DECADRON [Concomitant]
     Dosage: 8 MG, UNK
  4. AREDIA [Suspect]
     Indication: NEOPLASM MALIGNANT
  5. THALIDOMIDE [Suspect]
  6. CLINDAMYCIN HCL [Concomitant]
     Dosage: 300 MG, Q6H
     Route: 048
     Dates: start: 20080522
  7. VITAMIN D [Concomitant]
     Route: 048
  8. FLU-IMUNE [Concomitant]
     Dosage: UNK
     Dates: start: 20071001
  9. BENADRYL [Concomitant]
  10. PREMARIN [Concomitant]
  11. ZOMETA [Suspect]
     Indication: NEOPLASM MALIGNANT
     Dosage: 4 MG, UNK
     Dates: start: 20030101, end: 20060101
  12. LEVAQUIN [Suspect]
  13. CHLORHEXIDINE GLUCONATE [Concomitant]
  14. ACETAMINOPHEN [Concomitant]
  15. AMBIEN [Concomitant]
  16. ATENOLOL [Concomitant]
     Route: 048
  17. ALBUTEROL SULFATE [Concomitant]
     Route: 048
  18. CENTRUM SILVER [Concomitant]
     Route: 048
  19. ZOFRAN [Concomitant]
     Dosage: 4 MG, Q4H PRN
  20. ARANESP [Concomitant]
  21. GLEEVEC [Suspect]
     Route: 048
  22. CIPROFLOXACIN HCL [Concomitant]
  23. ONDANSETRON HCL [Concomitant]
  24. CLEOCIN HYDROCHLORIDE [Concomitant]
  25. VIACTIV [Concomitant]
     Route: 048
  26. THALOMID [Concomitant]
     Route: 048
  27. PERCOCET [Concomitant]
  28. PREVACID [Concomitant]
  29. SYNTHROID [Concomitant]
     Route: 048
  30. PROCRIT [Concomitant]
  31. TENORMIN [Concomitant]
     Dosage: 25 MG, QD
  32. PNEUMOCOCCAL VACCINE [Concomitant]

REACTIONS (100)
  - MENINGIOMA [None]
  - CELLULITIS ORBITAL [None]
  - BACTEROIDES TEST POSITIVE [None]
  - PANCYTOPENIA [None]
  - OSTEOPENIA [None]
  - NEUTROPENIA [None]
  - UPPER RESPIRATORY TRACT INFECTION [None]
  - FOOT DEFORMITY [None]
  - PERIPHERAL VASCULAR DISORDER [None]
  - TRICUSPID VALVE INCOMPETENCE [None]
  - CALCULUS URETERIC [None]
  - TRISMUS [None]
  - HYDRONEPHROSIS [None]
  - HYDROCEPHALUS [None]
  - OSTEOMYELITIS [None]
  - DEFORMITY [None]
  - LEUKAEMIA [None]
  - FACIAL BONES FRACTURE [None]
  - WHITE BLOOD CELL COUNT DECREASED [None]
  - THROMBOCYTOPENIA [None]
  - OSTEOPOROSIS [None]
  - HYPERLIPIDAEMIA [None]
  - HAEMATOLOGICAL MALIGNANCY [None]
  - EYE ABSCESS [None]
  - IMMUNODEFICIENCY [None]
  - MASS [None]
  - INJURY [None]
  - EYE SWELLING [None]
  - STRABISMUS [None]
  - OSTEOARTHRITIS [None]
  - CATARACT [None]
  - RECTAL HAEMORRHAGE [None]
  - ONYCHOMYCOSIS [None]
  - INGROWING NAIL [None]
  - HYPERKERATOSIS [None]
  - GENERALISED OEDEMA [None]
  - VASOGENIC CEREBRAL OEDEMA [None]
  - PAIN [None]
  - ANXIETY [None]
  - MULTIPLE MYELOMA [None]
  - NEOPLASM MALIGNANT [None]
  - CERUMEN IMPACTION [None]
  - OESOPHAGITIS [None]
  - MIXED DEAFNESS [None]
  - RED BLOOD CELL SEDIMENTATION RATE INCREASED [None]
  - BLOOD CREATININE INCREASED [None]
  - NEUROPATHY PERIPHERAL [None]
  - HYPOTHYROIDISM [None]
  - ORTHOSTATIC HYPOTENSION [None]
  - ARTHRITIS [None]
  - BREAST DISCHARGE [None]
  - GAIT DISTURBANCE [None]
  - SKIN HYPERPIGMENTATION [None]
  - DISABILITY [None]
  - OCULAR HYPERAEMIA [None]
  - BREAST CANCER [None]
  - CONJUNCTIVAL OEDEMA [None]
  - GINGIVITIS [None]
  - DEATH [None]
  - EATING DISORDER [None]
  - SINUSITIS [None]
  - THYROID CANCER [None]
  - DIPLOPIA [None]
  - PLEURAL EFFUSION [None]
  - RESPIRATORY FAILURE [None]
  - STAPHYLOCOCCUS TEST POSITIVE [None]
  - ANAEMIA [None]
  - CHRONIC SINUSITIS [None]
  - MUCOSAL INFLAMMATION [None]
  - RENAL FAILURE [None]
  - TENDONITIS [None]
  - HYPOAESTHESIA [None]
  - ORBITAL INFECTION [None]
  - FACIAL PAIN [None]
  - SPINAL OSTEOARTHRITIS [None]
  - RENAL DISORDER [None]
  - HYPERTENSION [None]
  - DIZZINESS [None]
  - RESPIRATORY TRACT OEDEMA [None]
  - SYNCOPE [None]
  - SUBDURAL HAEMATOMA [None]
  - HEADACHE [None]
  - CARDIOMEGALY [None]
  - ASCITES [None]
  - HEPATIC CYST [None]
  - OSTEONECROSIS OF JAW [None]
  - ANHEDONIA [None]
  - VISUAL IMPAIRMENT [None]
  - TOOTHACHE [None]
  - EYE PAIN [None]
  - VERTIGO [None]
  - BIFIDOBACTERIUM TEST POSITIVE [None]
  - EYE MOVEMENT DISORDER [None]
  - CONJUNCTIVITIS [None]
  - OEDEMA PERIPHERAL [None]
  - EPISTAXIS [None]
  - POSTMENOPAUSAL HAEMORRHAGE [None]
  - ONYCHOLYSIS [None]
  - DIARRHOEA [None]
  - DYSPNOEA EXERTIONAL [None]
